FAERS Safety Report 11946194 (Version 1)
Quarter: 2016Q1

REPORT INFORMATION
  Report Type: Report from Study
  Country: PR (occurrence: PR)
  Receive Date: 20160125
  Receipt Date: 20160125
  Transmission Date: 20160526
  Serious: No
  Sender: FDA-Public Use
  Company Number: PR-ABBVIE-15K-131-1350181-00

PATIENT
  Age: 52 Year
  Sex: Male
  Weight: 97.16 kg

DRUGS (3)
  1. HUMIRA [Suspect]
     Active Substance: ADALIMUMAB
     Indication: PSORIASIS
     Route: 058
     Dates: start: 20150209, end: 201506
  2. CEPACOL [Concomitant]
     Active Substance: BENZOCAINE
     Indication: PRODUCT USED FOR UNKNOWN INDICATION
  3. HUMIRA [Suspect]
     Active Substance: ADALIMUMAB
     Indication: PSORIATIC ARTHROPATHY

REACTIONS (6)
  - Cough [Unknown]
  - Immunodeficiency [Unknown]
  - Hypertension [Recovered/Resolved]
  - Chronic obstructive pulmonary disease [Recovering/Resolving]
  - Nasopharyngitis [Not Recovered/Not Resolved]
  - Asthma [Recovering/Resolving]

NARRATIVE: CASE EVENT DATE: 2015
